FAERS Safety Report 18818082 (Version 2)
Quarter: 2021Q1

REPORT INFORMATION
  Report Type: Spontaneous
  Country: CA (occurrence: CA)
  Receive Date: 20210202
  Receipt Date: 20210204
  Transmission Date: 20210419
  Serious: Yes (Other)
  Sender: FDA-Public Use
  Company Number: CA-JNJFOC-20210142685

PATIENT
  Age: 38 Year
  Sex: Female

DRUGS (10)
  1. INFLIXIMAB, RECOMBINANT [Suspect]
     Active Substance: INFLIXIMAB
     Route: 042
  2. ENTOCORT [Suspect]
     Active Substance: BUDESONIDE
     Indication: COLITIS ULCERATIVE
     Route: 065
  3. HUMIRA [Suspect]
     Active Substance: ADALIMUMAB
     Route: 058
  4. SALOFALK [MESALAZINE] [Suspect]
     Active Substance: MESALAMINE
     Indication: PRODUCT USED FOR UNKNOWN INDICATION
     Route: 065
  5. METHOTREXATE. [Concomitant]
     Active Substance: METHOTREXATE
     Route: 065
  6. SALOFALK [MESALAZINE] [Suspect]
     Active Substance: MESALAMINE
     Route: 065
  7. HUMIRA [Suspect]
     Active Substance: ADALIMUMAB
     Indication: ANKYLOSING SPONDYLITIS
     Route: 058
  8. METHOTREXATE. [Concomitant]
     Active Substance: METHOTREXATE
     Route: 065
  9. INFLIXIMAB, RECOMBINANT [Suspect]
     Active Substance: INFLIXIMAB
     Indication: COLITIS ULCERATIVE
     Route: 042
  10. PURINETHOL [Concomitant]
     Active Substance: MERCAPTOPURINE
     Route: 065

REACTIONS (8)
  - Drug ineffective [Not Recovered/Not Resolved]
  - Purulence [Not Recovered/Not Resolved]
  - Petechiae [Not Recovered/Not Resolved]
  - Large intestinal ulcer [Not Recovered/Not Resolved]
  - Angiopathy [Not Recovered/Not Resolved]
  - Mucosal disorder [Not Recovered/Not Resolved]
  - General symptom [Not Recovered/Not Resolved]
  - Therapeutic product effect incomplete [Not Recovered/Not Resolved]
